FAERS Safety Report 6167450-7 (Version None)
Quarter: 2009Q2

REPORT INFORMATION
  Report Type: 
  Country: None (occurrence: None)
  Receive Date: 20090424
  Receipt Date: 20090421
  Transmission Date: 20091009
  Serious: Yes (Death)
  Sender: FDA-Public Use
  Company Number: PHHY2009GB14957

PATIENT
  Age: 29 Year
  Sex: Male

DRUGS (2)
  1. CLOZAPINE [Suspect]
     Dosage: UNK
     Route: 048
     Dates: start: 20060706, end: 20081217
  2. ZAPONEX [Suspect]
     Dosage: UNK
     Route: 048
     Dates: start: 20081218

REACTIONS (1)
  - PANCREATITIS ACUTE [None]
